FAERS Safety Report 10040679 (Version 1)
Quarter: 2014Q1

REPORT INFORMATION
  Report Type: Spontaneous
  Country: US (occurrence: US)
  Receive Date: 20140327
  Receipt Date: 20140327
  Transmission Date: 20141002
  Serious: Yes (Other)
  Sender: FDA-Public Use
  Company Number: US-ELI_LILLY_AND_COMPANY-US201403006297

PATIENT
  Sex: Female

DRUGS (1)
  1. HUMALOG LISPRO [Suspect]
     Indication: TYPE 2 DIABETES MELLITUS
     Dosage: UNK UNK, PRN
     Route: 065
     Dates: start: 201309

REACTIONS (4)
  - Salivary gland neoplasm [Unknown]
  - VIIth nerve paralysis [Not Recovered/Not Resolved]
  - Disturbance in attention [Unknown]
  - Malaise [Recovered/Resolved]
